FAERS Safety Report 9567488 (Version 2)
Quarter: 2013Q3

REPORT INFORMATION
  Report Type: Spontaneous
  Country: US (occurrence: US)
  Receive Date: 20130930
  Receipt Date: 20130930
  Transmission Date: 20140515
  Serious: No
  Sender: FDA-Public Use
  Company Number: US-AMGEN-USASP2012067254

PATIENT
  Age: 64 Year
  Sex: Male
  Weight: 112.47 kg

DRUGS (3)
  1. ENBREL [Suspect]
     Indication: PSORIASIS
     Dosage: 50 MG, 2 TIMES/WK
     Dates: start: 20070801, end: 2008
  2. METHOTREXATE [Concomitant]
     Dosage: UNK
  3. TERAZOSIN [Concomitant]
     Dosage: 10 MG, QD

REACTIONS (4)
  - Respiratory tract congestion [Recovered/Resolved]
  - Hearing impaired [Not Recovered/Not Resolved]
  - Psoriasis [Not Recovered/Not Resolved]
  - Upper respiratory tract infection [Unknown]
